FAERS Safety Report 13927444 (Version 1)
Quarter: 2017Q3

REPORT INFORMATION
  Report Type: Spontaneous
  Country: US (occurrence: US)
  Receive Date: 20170831
  Receipt Date: 20170831
  Transmission Date: 20171127
  Serious: Yes (Other)
  Sender: FDA-Public Use
  Company Number: None

PATIENT
  Age: 49 Year
  Sex: Female
  Weight: 114.75 kg

DRUGS (8)
  1. JANUVIA [Concomitant]
     Active Substance: SITAGLIPTIN PHOSPHATE
  2. CYMBALTA [Concomitant]
     Active Substance: DULOXETINE HYDROCHLORIDE
  3. SYNTHROID [Concomitant]
     Active Substance: LEVOTHYROXINE SODIUM
  4. LETROZOLE. [Concomitant]
     Active Substance: LETROZOLE
  5. SIMVASTATIN. [Concomitant]
     Active Substance: SIMVASTATIN
  6. ABILIFY [Concomitant]
     Active Substance: ARIPIPRAZOLE
  7. LISINOPRIL. [Concomitant]
     Active Substance: LISINOPRIL
  8. IBRANCE [Suspect]
     Active Substance: PALBOCICLIB
     Indication: BREAST CANCER
     Route: 048
     Dates: start: 20170329

REACTIONS (1)
  - Stomatitis [None]
